FAERS Safety Report 11354518 (Version 1)
Quarter: 2015Q3

REPORT INFORMATION
  Report Type: Spontaneous
  Country: US (occurrence: US)
  Receive Date: 20150807
  Receipt Date: 20150807
  Transmission Date: 20151125
  Serious: No
  Sender: FDA-Public Use
  Company Number: US-JNJFOC-20150310517

PATIENT
  Age: 38 Year
  Sex: Female
  Weight: 64.86 kg

DRUGS (3)
  1. DIFLUCAN [Concomitant]
     Active Substance: FLUCONAZOLE
     Indication: FUNGAL INFECTION
     Route: 065
     Dates: start: 20150304, end: 20150304
  2. WOMENS ROGAINE UNSCENTED [Suspect]
     Active Substance: MINOXIDIL
     Indication: ALOPECIA
     Dosage: 1/2 CAPFUL, 3 TIMES TO SCALP
     Route: 061
     Dates: start: 20150306, end: 20150308
  3. WOMENS ROGAINE UNSCENTED [Suspect]
     Active Substance: MINOXIDIL
     Route: 061

REACTIONS (11)
  - Weight fluctuation [Not Recovered/Not Resolved]
  - Oedema peripheral [Recovered/Resolved]
  - Night sweats [Recovered/Resolved]
  - Premenstrual syndrome [Unknown]
  - Fluid retention [Not Recovered/Not Resolved]
  - Heart rate increased [Recovered/Resolved]
  - Palpitations [Unknown]
  - Hair texture abnormal [Unknown]
  - Hot flush [Recovering/Resolving]
  - Paraesthesia [Recovered/Resolved]
  - Hypoaesthesia [Unknown]

NARRATIVE: CASE EVENT DATE: 20150306
